FAERS Safety Report 5109265-4 (Version None)
Quarter: 2006Q3

REPORT INFORMATION
  Report Type: 
  Country: None (occurrence: None)
  Receive Date: 20060918
  Receipt Date: 20060831
  Transmission Date: 20061208
  Serious: Yes (Hospitalization, Disabling, Other)
  Sender: FDA-Public Use
  Company Number: US200603001278

PATIENT
  Age: 48 Year
  Sex: Male
  Weight: 113.4 kg

DRUGS (2)
  1. ZYPREXA [Suspect]
     Dosage: SEE IMAGE
     Dates: start: 19960101, end: 20010101
  2. REMERON /NET/ (MITRAZAPINE) [Concomitant]

REACTIONS (16)
  - ACETONAEMIA [None]
  - BLOOD CHOLESTEROL ABNORMAL [None]
  - BLOOD TRIGLYCERIDES INCREASED [None]
  - CONDITION AGGRAVATED [None]
  - DEPRESSION [None]
  - DIABETES MELLITUS [None]
  - DIABETIC NEPHROPATHY [None]
  - DIABETIC NEUROPATHY [None]
  - DIABETIC RETINOPATHY [None]
  - HYPERTENSION [None]
  - IMPAIRED GASTRIC EMPTYING [None]
  - INSULIN RESISTANCE [None]
  - KETONURIA [None]
  - METABOLIC DISORDER [None]
  - METABOLIC SYNDROME [None]
  - RENAL DISORDER [None]
